FAERS Safety Report 18897851 (Version 1)
Quarter: 2021Q1

REPORT INFORMATION
  Report Type: Spontaneous
  Country: US (occurrence: US)
  Receive Date: 20210216
  Receipt Date: 20210216
  Transmission Date: 20210420
  Serious: Yes (Hospitalization)
  Sender: FDA-Public Use
  Company Number: US-CELLTRION INC.-2021US001602

PATIENT

DRUGS (2)
  1. TRUXIMA [Suspect]
     Active Substance: RITUXIMAB-ABBS
     Dosage: SECOND DOSE
     Dates: start: 20201011
  2. TRUXIMA [Suspect]
     Active Substance: RITUXIMAB-ABBS
     Indication: PRODUCT USED FOR UNKNOWN INDICATION
     Dosage: FIRST ADMINISTRATION

REACTIONS (6)
  - Disease recurrence [Unknown]
  - Lung infiltration [Unknown]
  - Hypotension [Unknown]
  - Pyrexia [Unknown]
  - Condition aggravated [Unknown]
  - Hypoxia [Unknown]
